FAERS Safety Report 8481560 (Version 3)
Quarter: 2013Q2

REPORT INFORMATION
  Report Type: Spontaneous
  Country: AR (occurrence: AR)
  Receive Date: 20120329
  Receipt Date: 20130417
  Transmission Date: 20140414
  Serious: Yes (Hospitalization)
  Sender: FDA-Public Use
  Company Number: PHHY2012AR026247

PATIENT
  Age: 18 Year
  Sex: Female

DRUGS (2)
  1. TRILEPTAL [Suspect]
     Indication: CONVULSION
     Dosage: 300 MG TWICE DAILY
  2. TRILEPTAL [Suspect]
     Indication: EPILEPSY

REACTIONS (3)
  - Uterine contractions during pregnancy [Recovering/Resolving]
  - Maternal exposure during pregnancy [Unknown]
  - Convulsion [Recovering/Resolving]
